FAERS Safety Report 11047966 (Version 1)
Quarter: 2015Q2

REPORT INFORMATION
  Report Type: Spontaneous
  Country: TR (occurrence: TR)
  Receive Date: 20150420
  Receipt Date: 20150420
  Transmission Date: 20150821
  Serious: No
  Sender: FDA-Public Use
  Company Number: TR-SA-2015SA047796

PATIENT
  Age: 24 Year
  Sex: Female
  Weight: 55 kg

DRUGS (3)
  1. FOLBIOL [Concomitant]
     Active Substance: FOLIC ACID
     Indication: PROPHYLAXIS
     Route: 048
     Dates: start: 201501
  2. ARAVA [Suspect]
     Active Substance: LEFLUNOMIDE
     Indication: RHEUMATOID ARTHRITIS
     Dosage: DOSAGE:1*1
     Route: 048
     Dates: start: 201408, end: 201410
  3. FERRO ^SANOL^ [Concomitant]
     Indication: PROPHYLAXIS
     Route: 048
     Dates: start: 201501

REACTIONS (1)
  - Exposure during pregnancy [Unknown]
